FAERS Safety Report 9565511 (Version 1)
Quarter: 2013Q3

REPORT INFORMATION
  Report Type: Spontaneous
  Country: US (occurrence: US)
  Receive Date: 20130930
  Receipt Date: 20130930
  Transmission Date: 20140515
  Serious: Yes (Other)
  Sender: FDA-Public Use
  Company Number: US-PFIZER INC-2013278740

PATIENT
  Age: 67 Year
  Sex: Female

DRUGS (1)
  1. RAPAMUNE [Suspect]
     Indication: LIVER TRANSPLANT
     Dosage: 1 MG, 2X/DAY
     Dates: start: 20111201, end: 20130703

REACTIONS (3)
  - Pneumonia [Unknown]
  - Renal disorder [Unknown]
  - Off label use [Unknown]
